FAERS Safety Report 26178889 (Version 1)
Quarter: 2025Q4

REPORT INFORMATION
  Report Type: Spontaneous
  Country: US (occurrence: US)
  Receive Date: 20251219
  Receipt Date: 20251219
  Transmission Date: 20260117
  Serious: Yes (Death)
  Sender: Phathom Pharmaceuticals
  Company Number: US-PHATHOM PHARMACEUTICALS INC.-2025PHT03713

PATIENT
  Age: 47 Year
  Sex: Male

DRUGS (5)
  1. VOQUEZNA [Suspect]
     Active Substance: VONOPRAZAN FUMARATE
     Dosage: 20 MG, 1X/DAY
     Route: 048
     Dates: start: 20250718, end: 2025
  2. AIRSUPRA [Concomitant]
     Active Substance: ALBUTEROL SULFATE\BUDESONIDE
  3. XANAX [Concomitant]
     Active Substance: ALPRAZOLAM
  4. XELODA [Concomitant]
     Active Substance: CAPECITABINE
  5. OPDIVO [Concomitant]
     Active Substance: NIVOLUMAB

REACTIONS (1)
  - Oesophageal cancer metastatic [Fatal]
